FAERS Safety Report 8319413-0 (Version None)
Quarter: 2012Q2

REPORT INFORMATION
  Report Type: 
  Country: None (occurrence: None)
  Receive Date: 20120427
  Receipt Date: 20120423
  Transmission Date: 20120825
  Serious: Yes (Death)
  Sender: FDA-Public Use
  Company Number: PHHY2012US035265

PATIENT
  Age: 77 Year
  Sex: Female

DRUGS (7)
  1. NITROGLYCERIN [Suspect]
  2. CARVEDILOL [Suspect]
  3. CITALOPRAM HYDROBROMIDE [Suspect]
  4. ALPRAZOLAM [Suspect]
  5. OXYBUTYNIN [Suspect]
  6. ALENDRONATE SODIUM [Suspect]
  7. SALICYLATE SODIUM [Suspect]

REACTIONS (1)
  - COMPLETED SUICIDE [None]
